FAERS Safety Report 24985257 (Version 1)
Quarter: 2025Q1

REPORT INFORMATION
  Report Type: Other
  Country: TR (occurrence: TR)
  Receive Date: 20250219
  Receipt Date: 20250219
  Transmission Date: 20250408
  Serious: Yes (Hospitalization)
  Sender: EMD SERONO INC
  Company Number: TR-Merck Healthcare KGaA-2025007203

PATIENT
  Age: 47 Year
  Sex: Female

DRUGS (1)
  1. INTERFERON BETA [Suspect]
     Active Substance: INTERFERON BETA
     Indication: Multiple sclerosis

REACTIONS (1)
  - Arthralgia [Unknown]
